FAERS Safety Report 15384874 (Version 3)
Quarter: 2018Q3

REPORT INFORMATION
  Report Type: Report from Study
  Country: IT (occurrence: IT)
  Receive Date: 20180914
  Receipt Date: 20180926
  Transmission Date: 20181010
  Serious: Yes (Hospitalization)
  Sender: FDA-Public Use
  Company Number: IT-TAKEDA-2018TUS027033

PATIENT
  Sex: Male

DRUGS (8)
  1. COBALAMIN [Concomitant]
     Active Substance: COBALAMIN
     Dosage: UNK
  2. VEDOLIZUMAB [Suspect]
     Active Substance: VEDOLIZUMAB
     Indication: PRODUCT USED FOR UNKNOWN INDICATION
     Dosage: UNK
     Route: 042
     Dates: start: 20180115
  3. METRONIDAZOLO [Concomitant]
     Active Substance: METRONIDAZOLE
     Dosage: UNK
  4. CIPROFLOXACINA                     /00697201/ [Concomitant]
     Active Substance: CIPROFLOXACIN
     Dosage: UNK
  5. CHOLECALCIFEROL [Concomitant]
     Active Substance: CHOLECALCIFEROL
     Dosage: UNK
  6. IRON SULFATE [Concomitant]
     Active Substance: FERROUS SULFATE ANHYDROUS
     Dosage: UNK
  7. BUDESONIDE. [Concomitant]
     Active Substance: BUDESONIDE
     Dosage: UNK
  8. K                                  /00031401/ [Concomitant]
     Dosage: UNK

REACTIONS (2)
  - Malabsorption [Recovered/Resolved with Sequelae]
  - Short-bowel syndrome [Recovered/Resolved with Sequelae]

NARRATIVE: CASE EVENT DATE: 20180725
